FAERS Safety Report 18727170 (Version 3)
Quarter: 2021Q1

REPORT INFORMATION
  Report Type: Report from Study
  Country: None (occurrence: CA)
  Receive Date: 20210112
  Receipt Date: 20210309
  Transmission Date: 20210419
  Serious: Yes (Other)
  Sender: FDA-Public Use
  Company Number: CA-ABBVIE-21K-028-3718102-00

PATIENT
  Age: 59 Year
  Sex: Female

DRUGS (2)
  1. RINVOQ [Suspect]
     Active Substance: UPADACITINIB
     Indication: RHEUMATOID ARTHRITIS
     Route: 048
     Dates: start: 20201210
  2. RINVOQ [Suspect]
     Active Substance: UPADACITINIB
     Route: 048

REACTIONS (11)
  - Vein rupture [Unknown]
  - Frequent bowel movements [Unknown]
  - Optic neuritis [Unknown]
  - Mouth ulceration [Recovering/Resolving]
  - Peripheral swelling [Unknown]
  - Abdominal pain upper [Unknown]
  - Metabolic disorder [Unknown]
  - Gait inability [Unknown]
  - Burning sensation [Unknown]
  - Swelling [Unknown]
  - Drug ineffective [Unknown]

NARRATIVE: CASE EVENT DATE: 20201225
